FAERS Safety Report 10019532 (Version 1)
Quarter: 2014Q1

REPORT INFORMATION
  Report Type: Report from Study
  Country: US (occurrence: US)
  Receive Date: 20140318
  Receipt Date: 20140318
  Transmission Date: 20141002
  Serious: Yes (Hospitalization)
  Sender: FDA-Public Use
  Company Number: US-NAPPMUNDI-USA-2014-0112050

PATIENT
  Sex: Female

DRUGS (2)
  1. OXY CR TAB [Suspect]
     Indication: PAIN
     Dosage: UNK
     Route: 048
     Dates: start: 201208
  2. OXY CR TAB [Suspect]
     Dosage: 30 MG, BID
     Route: 048
     Dates: start: 20140204

REACTIONS (2)
  - Investigation [Unknown]
  - Inadequate analgesia [Unknown]
